FAERS Safety Report 4505373-7 (Version None)
Quarter: 2004Q4

REPORT INFORMATION
  Report Type: 
  Country: None (occurrence: None)
  Receive Date: 20041119
  Receipt Date: 20041108
  Transmission Date: 20050328
  Serious: Yes (Death, Hospitalization, Other)
  Sender: FDA-Public Use
  Company Number: VE-BRISTOL-MYERS SQUIBB COMPANY-12759627

PATIENT
  Age: 49 Year
  Sex: Male

DRUGS (4)
  1. ATAZANAVIR [Suspect]
     Indication: HIV INFECTION
     Dosage: DOSE REDUCED FROM 400 TO 300 MG ON 22-OCT-2004 PRIOR TO EVENTS
     Route: 048
     Dates: start: 20040624, end: 20041101
  2. DIDANOSINE [Concomitant]
     Dates: start: 20040624, end: 20041101
  3. LAMIVUDINE [Concomitant]
     Dates: start: 20040624, end: 20041101
  4. RITONAVIR [Concomitant]
     Dates: start: 20041022, end: 20041101

REACTIONS (8)
  - ATRIOVENTRICULAR BLOCK FIRST DEGREE [None]
  - BUNDLE BRANCH BLOCK RIGHT [None]
  - CARDIAC FAILURE [None]
  - CYANOSIS [None]
  - DIARRHOEA [None]
  - HYPOCALCAEMIA [None]
  - HYPOKALAEMIA [None]
  - RESPIRATORY FAILURE [None]
